FAERS Safety Report 9881964 (Version 1)
Quarter: 2014Q1

REPORT INFORMATION
  Report Type: Spontaneous
  Country: US (occurrence: US)
  Receive Date: 20140207
  Receipt Date: 20140207
  Transmission Date: 20141002
  Serious: Yes (Other)
  Sender: FDA-Public Use
  Company Number: US-BRISTOL-MYERS SQUIBB COMPANY-20139986

PATIENT
  Age: 54 Year
  Sex: Female

DRUGS (2)
  1. ERBITUX [Suspect]
     Indication: COLON CANCER
     Dates: start: 20130830
  2. IRINOTECAN HCL [Suspect]
     Indication: COLON CANCER

REACTIONS (2)
  - Neuropathy peripheral [Unknown]
  - Rash [Recovered/Resolved]
